FAERS Safety Report 4806760-X (Version None)
Quarter: 2005Q4

REPORT INFORMATION
  Report Type: 
  Country: None (occurrence: None)
  Receive Date: 20051019
  Receipt Date: 20050929
  Transmission Date: 20060501
  Serious: Yes (Other)
  Sender: FDA-Public Use
  Company Number: DE_050917087

PATIENT
  Age: 78 Year
  Sex: Male

DRUGS (1)
  1. XIGRIS (DROTRECOGIN ALFA (ACTIVATED)) [Suspect]
     Dates: start: 20050901

REACTIONS (1)
  - THROMBOCYTOPENIA [None]
